FAERS Safety Report 4771199-2 (Version None)
Quarter: 2005Q3

REPORT INFORMATION
  Report Type: 
  Country: None (occurrence: None)
  Receive Date: 20050914
  Receipt Date: 20050825
  Transmission Date: 20060218
  Serious: Yes (Hospitalization, Other)
  Sender: FDA-Public Use
  Company Number: USA0508106387

PATIENT
  Age: 77 Year
  Sex: Male

DRUGS (2)
  1. HUMALOG [Suspect]
     Indication: DIABETES MELLITUS
     Dosage: UNK
     Route: 065
     Dates: start: 20050601
  2. PLAVIX [Concomitant]

REACTIONS (12)
  - ANXIETY [None]
  - BLOOD GLUCOSE INCREASED [None]
  - CATHETER RELATED COMPLICATION [None]
  - CATHETER SITE HAEMORRHAGE [None]
  - DRUG ADMINISTRATION ERROR [None]
  - INJECTION SITE PAIN [None]
  - POST PROCEDURAL HAEMORRHAGE [None]
  - PROCEDURAL COMPLICATION [None]
  - PROCEDURAL PAIN [None]
  - SURGICAL PROCEDURE REPEATED [None]
  - THROMBOSIS [None]
  - WRONG TECHNIQUE IN DRUG USAGE PROCESS [None]
